FAERS Safety Report 12156593 (Version 1)
Quarter: 2016Q1

REPORT INFORMATION
  Report Type: Spontaneous
  Country: ZA (occurrence: ZA)
  Receive Date: 20160307
  Receipt Date: 20160307
  Transmission Date: 20160526
  Serious: Yes (Other)
  Sender: FDA-Public Use
  Company Number: ZA-MYLANLABS-2016M1009694

PATIENT

DRUGS (4)
  1. NEVIRAPINE MYLAN 200MG TABLETS [Suspect]
     Active Substance: NEVIRAPINE
     Indication: ANTIRETROVIRAL THERAPY
     Dosage: 200 MG, BID
     Route: 048
     Dates: start: 200606, end: 201312
  2. STAVUDINE. [Suspect]
     Active Substance: STAVUDINE
     Indication: ANTIRETROVIRAL THERAPY
     Dosage: 30 MG, BID
     Route: 048
     Dates: start: 200606, end: 201312
  3. BACTRIM [Suspect]
     Active Substance: SULFAMETHOXAZOLE\TRIMETHOPRIM
     Indication: PRODUCT USED FOR UNKNOWN INDICATION
     Dosage: UNK (2 TABLETS DAILY)
     Route: 048
     Dates: start: 200606, end: 201312
  4. LAMIVUDINE MYLAN [Suspect]
     Active Substance: LAMIVUDINE
     Indication: ANTIRETROVIRAL THERAPY
     Dosage: 150 MG, BID
     Route: 048
     Dates: start: 200606, end: 201312

REACTIONS (5)
  - Headache [Unknown]
  - Viral load increased [None]
  - Viral load [Unknown]
  - Dizziness [Unknown]
  - Blood creatine increased [Unknown]
